FAERS Safety Report 24257966 (Version 2)
Quarter: 2024Q3

REPORT INFORMATION
  Report Type: Other
  Country: US (occurrence: US)
  Receive Date: 20240828
  Receipt Date: 20240830
  Transmission Date: 20241017
  Serious: Yes (Life-Threatening, Hospitalization)
  Sender: B BRAUN
  Company Number: US-B.Braun Medical Inc.-2160919

PATIENT
  Age: 46 Year
  Sex: Male

DRUGS (3)
  1. CEFAZOLIN SODIUM [Suspect]
     Active Substance: CEFAZOLIN SODIUM
     Indication: Staphylococcal infection
     Route: 042
  2. MEROPENEM [Concomitant]
     Active Substance: MEROPENEM
  3. VANCOMYCIN [Concomitant]
     Active Substance: VANCOMYCIN

REACTIONS (1)
  - Drug ineffective [Not Recovered/Not Resolved]
